FAERS Safety Report 7305298-8 (Version None)
Quarter: 2011Q1

REPORT INFORMATION
  Report Type: 
  Country: None (occurrence: None)
  Receive Date: 20110222
  Receipt Date: 20110214
  Transmission Date: 20110831
  Serious: Yes (Hospitalization, Other)
  Sender: FDA-Public Use
  Company Number: AR-AMGEN-ARGSP2011009423

PATIENT
  Sex: Female

DRUGS (1)
  1. ENBREL [Suspect]
     Indication: PRODUCT USED FOR UNKNOWN INDICATION
     Dosage: UNK

REACTIONS (7)
  - COUGH [None]
  - JOINT SWELLING [None]
  - ESCHERICHIA INFECTION [None]
  - DRUG INEFFECTIVE [None]
  - INFLUENZA [None]
  - HYPERSENSITIVITY [None]
  - INFECTION [None]
